FAERS Safety Report 19840794 (Version 1)
Quarter: 2021Q3

REPORT INFORMATION
  Report Type: Spontaneous
  Country: US (occurrence: US)
  Receive Date: 20210916
  Receipt Date: 20210916
  Transmission Date: 20211014
  Serious: No
  Sender: FDA-Public Use
  Company Number: US-JNJFOC-20210857024

PATIENT
  Age: 60 Year
  Sex: Female
  Weight: 72.64 kg

DRUGS (3)
  1. TREMFYA [Suspect]
     Active Substance: GUSELKUMAB
  2. ESTRADIOL. [Concomitant]
     Active Substance: ESTRADIOL
     Indication: PRODUCT USED FOR UNKNOWN INDICATION
     Route: 065
  3. TREMFYA [Suspect]
     Active Substance: GUSELKUMAB
     Indication: PSORIASIS
     Route: 065
     Dates: start: 20200228

REACTIONS (2)
  - Hyperhidrosis [Recovered/Resolved]
  - Psoriasis [Unknown]
